FAERS Safety Report 4807121-X (Version None)
Quarter: 2005Q4

REPORT INFORMATION
  Report Type: 
  Country: None (occurrence: None)
  Receive Date: 20051024
  Receipt Date: 20051018
  Transmission Date: 20060501
  Serious: Yes (Death)
  Sender: FDA-Public Use
  Company Number: 2005-UK-00348UK

PATIENT
  Age: 61 Year
  Sex: Male

DRUGS (7)
  1. SALBUTAMOL [Suspect]
     Dosage: 2PUFF FOUR TIMES PER DAY
     Route: 055
  2. SERETIDE [Suspect]
     Dosage: 2PUFF SEE DOSAGE TEXT
     Route: 055
  3. TIOTROPIUM [Suspect]
     Dosage: 18MCG PER DAY
     Route: 055
  4. CALCICHEW [Suspect]
     Route: 065
  5. ASPIRIN [Suspect]
     Dosage: 75MG PER DAY
     Route: 065
  6. OMEPRAZOLE [Suspect]
     Dosage: 2CAP PER DAY
     Route: 065
  7. FLOMAX [Suspect]
     Dosage: 400MCG PER DAY
     Route: 065

REACTIONS (2)
  - ASBESTOSIS [None]
  - CHRONIC OBSTRUCTIVE PULMONARY DISEASE [None]
